FAERS Safety Report 25637715 (Version 1)
Quarter: 2025Q3

REPORT INFORMATION
  Report Type: Report from Study
  Country: CA (occurrence: CA)
  Receive Date: 20250804
  Receipt Date: 20250804
  Transmission Date: 20251020
  Serious: Yes (Other)
  Sender: LEO PHARM
  Company Number: CA-LEO Pharma-381756

PATIENT
  Age: 72 Year
  Sex: Male

DRUGS (1)
  1. ADBRY [Suspect]
     Active Substance: TRALOKINUMAB-LDRM
     Indication: Dermatitis atopic
     Dosage: DOSAGE FORM AND STRENGTH: 150 MG/ML PRE-FILLED SYRINGE?TREATMENT: ONGOING?DOSE PERTAINING TO PROVIDE
     Route: 058
     Dates: start: 20240807

REACTIONS (1)
  - Eye infection [Not Recovered/Not Resolved]
